FAERS Safety Report 5179720-X (Version None)
Quarter: 2006Q4

REPORT INFORMATION
  Report Type: 
  Country: None (occurrence: None)
  Receive Date: 20061212
  Receipt Date: 20061130
  Transmission Date: 20070319
  Serious: Yes (Other)
  Sender: FDA-Public Use
  Company Number: 2000034615DK

PATIENT
  Age: 58 Year
  Sex: Female
  Weight: 78.2001 kg

DRUGS (5)
  1. GENOTROPIN [Suspect]
     Indication: HYPOPITUITARISM
     Dosage: 0.8 MG (1 IN 1 D), SUBCUTANEOUS
     Route: 058
     Dates: start: 19980312, end: 20000609
  2. HYDROCORTISONE [Concomitant]
  3. MINRIN           (DESMOPRESSIN) [Concomitant]
  4. LEVOTHYROXINE SODIUM [Concomitant]
  5. KLIOGEST           (ESTRADIOL, NORETHISTERONE ACETATE) [Concomitant]

REACTIONS (2)
  - DISEASE PROGRESSION [None]
  - PITUITARY TUMOUR BENIGN [None]
